FAERS Safety Report 21057844 (Version 1)
Quarter: 2022Q3

REPORT INFORMATION
  Report Type: Spontaneous
  Country: US (occurrence: None)
  Receive Date: 20220707
  Receipt Date: 20220707
  Transmission Date: 20221026
  Serious: Yes (Life-Threatening, Other)
  Sender: FDA-Public Use
  Company Number: None

PATIENT
  Age: 51 Year
  Sex: Female

DRUGS (1)
  1. CAPECITABINE [Suspect]
     Active Substance: CAPECITABINE
     Dosage: 1000MG BID ORAL?
     Route: 048
     Dates: start: 202205

REACTIONS (7)
  - Fall [None]
  - Thrombosis [None]
  - Therapy interrupted [None]
  - Pain in extremity [None]
  - Erythema [None]
  - Skin exfoliation [None]
  - Lower limb fracture [None]

NARRATIVE: CASE EVENT DATE: 20220605
